FAERS Safety Report 6889335-0 (Version None)
Quarter: 2010Q3

REPORT INFORMATION
  Report Type: 
  Country: None (occurrence: None)
  Receive Date: 20100730
  Receipt Date: 20080211
  Transmission Date: 20110219
  Serious: No
  Sender: FDA-Public Use
  Company Number: US-PFIZER INC-2008013739

PATIENT
  Sex: Female

DRUGS (11)
  1. LIPITOR [Suspect]
     Indication: BLOOD CHOLESTEROL
  2. GRAPEFRUIT JUICE [Interacting]
  3. GLUCOPHAGE [Concomitant]
  4. SYNTHROID [Concomitant]
  5. GLUCOTROL [Concomitant]
  6. HYDROCHLOROTHIAZIDE [Concomitant]
  7. ASPIRIN [Concomitant]
  8. PLAVIX [Concomitant]
  9. ISOSORBIDE [Concomitant]
  10. TOPROL-XL [Concomitant]
  11. ALTACE [Concomitant]

REACTIONS (2)
  - DRUG INTERACTION [None]
  - PARAESTHESIA [None]
